FAERS Safety Report 7951683-0 (Version None)
Quarter: 2011Q4

REPORT INFORMATION
  Report Type: 
  Country: None (occurrence: None)
  Receive Date: 20111201
  Receipt Date: 20111118
  Transmission Date: 20120403
  Serious: Yes (Other)
  Sender: FDA-Public Use
  Company Number: US-ROCHE-1014605

PATIENT
  Sex: Female

DRUGS (2)
  1. RIBAVIRIN [Suspect]
     Indication: HEPATITIS C
     Route: 065
     Dates: start: 20050101, end: 20060101
  2. PEGASYS [Suspect]
     Indication: HEPATITIS C
     Route: 065
     Dates: start: 20050101, end: 20060101

REACTIONS (4)
  - ABDOMINAL PAIN [None]
  - INSOMNIA [None]
  - HEPATIC HAEMORRHAGE [None]
  - UNEVALUABLE EVENT [None]
